FAERS Safety Report 9213840 (Version 1)
Quarter: 2013Q2

REPORT INFORMATION
  Report Type: Spontaneous
  Country: FR (occurrence: FR)
  Receive Date: 20130405
  Receipt Date: 20130405
  Transmission Date: 20140414
  Serious: Yes (Death, Hospitalization)
  Sender: FDA-Public Use
  Company Number: FR-SANOFI-AVENTIS-2013SA032631

PATIENT
  Age: 91 Year
  Sex: Male

DRUGS (11)
  1. LASILIX [Suspect]
     Indication: PRODUCT USED FOR UNKNOWN INDICATION
     Dosage: STRENGTH: 500MG
     Route: 065
  2. COVERSYL [Suspect]
     Indication: PRODUCT USED FOR UNKNOWN INDICATION
     Route: 065
     Dates: end: 20120530
  3. ALDACTONE [Suspect]
     Indication: PRODUCT USED FOR UNKNOWN INDICATION
     Dosage: STRENGTH: 25 MG
     Route: 065
     Dates: start: 20120601
  4. COUMADINE [Concomitant]
  5. MIANSERINE [Concomitant]
     Dosage: STRENGTH: 30 MG
  6. SERESTA [Concomitant]
     Indication: DEPRESSION
     Dosage: STRENGTH: 50 MG
  7. TRANSIPEG [Concomitant]
     Dosage: FORM: PACKET?DOSE: 2 PACKETS DAILY?STRENGTH:5.9 G
     Dates: start: 20120601
  8. STILNOX [Concomitant]
     Dosage: STRENGTH: 10 MG
  9. KARDEGIC [Concomitant]
     Dosage: STRENGTH: 75MG
     Dates: start: 20120705
  10. CARDENSIEL [Concomitant]
     Dosage: STRENGTH: 2.5 MG
  11. CORDARONE [Concomitant]
     Dosage: STRENGTH: 200MG

REACTIONS (11)
  - Renal failure acute [Fatal]
  - Anuria [Fatal]
  - Renal failure [Fatal]
  - Hypovolaemic shock [Fatal]
  - Hypotension [Unknown]
  - Dehydration [None]
  - Psychomotor skills impaired [None]
  - International normalised ratio increased [None]
  - Atrioventricular block first degree [None]
  - Fluid overload [None]
  - Blood creatine phosphokinase increased [None]
